FAERS Safety Report 9364129 (Version 2)
Quarter: 2013Q3

REPORT INFORMATION
  Report Type: Spontaneous
  Country: FR (occurrence: FR)
  Receive Date: 20130624
  Receipt Date: 20130925
  Transmission Date: 20140515
  Serious: Yes (Other)
  Sender: FDA-Public Use
  Company Number: FR-TEVA-414325ISR

PATIENT
  Age: 89 Year
  Sex: Male

DRUGS (2)
  1. FUROSEMIDE TEVA 40 MG [Suspect]
     Indication: CARDIAC FAILURE
     Dosage: 60 MILLIGRAM DAILY;
     Route: 048
     Dates: start: 20130527, end: 20130531
  2. FUROSEMIDE TEVA 40 MG [Suspect]
     Indication: ACUTE PULMONARY OEDEMA

REACTIONS (4)
  - Cardiac failure [Unknown]
  - Somnolence [Recovered/Resolved]
  - Asthenia [Recovered/Resolved]
  - No therapeutic response [Unknown]
